FAERS Safety Report 7125118-4 (Version None)
Quarter: 2010Q4

REPORT INFORMATION
  Report Type: 
  Country: None (occurrence: None)
  Receive Date: 20101129
  Receipt Date: 20101022
  Transmission Date: 20110411
  Serious: Yes (Hospitalization, Other)
  Sender: FDA-Public Use
  Company Number: US-AMGEN-USASP2010001787

PATIENT

DRUGS (3)
  1. PROCRIT [Suspect]
     Indication: ANAEMIA OF MALIGNANT DISEASE
     Dosage: 40000 UNIT, QWK
     Route: 058
     Dates: start: 19950101
  2. SODIUM BICARB.PED [Concomitant]
     Dosage: UNK
     Route: 048
  3. HECTOROL [Concomitant]
     Dosage: UNK
     Route: 048

REACTIONS (7)
  - ABDOMINAL PAIN [None]
  - ARTHRALGIA [None]
  - BLADDER CANCER [None]
  - CATHETER SITE HAEMORRHAGE [None]
  - GASTROINTESTINAL CARCINOMA [None]
  - NAUSEA [None]
  - URINARY INCONTINENCE [None]
